FAERS Safety Report 4764597-4 (Version None)
Quarter: 2005Q3

REPORT INFORMATION
  Report Type: 
  Country: None (occurrence: None)
  Receive Date: 20050909
  Receipt Date: 20050607
  Transmission Date: 20060218
  Serious: Yes (Hospitalization)
  Sender: FDA-Public Use
  Company Number: 200511931FR

PATIENT
  Age: 73 Year
  Sex: Female

DRUGS (8)
  1. ARAVA [Suspect]
     Indication: RHEUMATOID ARTHRITIS
     Route: 048
     Dates: start: 20020101, end: 20041110
  2. NABUCOX [Concomitant]
     Route: 048
     Dates: start: 20020101, end: 20050401
  3. DEROXAT [Concomitant]
     Indication: DEPRESSION
     Route: 048
     Dates: start: 20030101, end: 20050401
  4. CORTANCYL [Concomitant]
     Route: 048
     Dates: start: 20020101
  5. OGAST [Concomitant]
     Route: 048
     Dates: start: 20020101
  6. DOLIPRANE [Concomitant]
     Route: 048
     Dates: start: 20020101
  7. ACTONEL [Concomitant]
     Route: 048
     Dates: start: 20020101
  8. CACIT D3 [Concomitant]
     Route: 048
     Dates: start: 20020101

REACTIONS (6)
  - DYSPNOEA [None]
  - MYALGIA [None]
  - PNEUMONITIS [None]
  - PRURITUS [None]
  - PULMONARY FIBROSIS [None]
  - RESPIRATORY FAILURE [None]
